FAERS Safety Report 5947262-7 (Version None)
Quarter: 2008Q4

REPORT INFORMATION
  Report Type: 
  Country: None (occurrence: None)
  Receive Date: 20081110
  Receipt Date: 20081104
  Transmission Date: 20090506
  Serious: No
  Sender: FDA-Public Use
  Company Number: US-B.I. PHARMACEUTICALS,INC./RIDGEFIELD-2008-BP-16563BP

PATIENT
  Sex: Female

DRUGS (6)
  1. COMBIVENT [Suspect]
     Indication: CHRONIC OBSTRUCTIVE PULMONARY DISEASE
     Route: 055
  2. COMBIVENT [Suspect]
     Indication: ASTHMA
  3. OXYGEN [Concomitant]
  4. COZAAR [Concomitant]
  5. FUROSEMIDE [Concomitant]
  6. TYLENOL (CAPLET) [Concomitant]

REACTIONS (3)
  - DRUG INEFFECTIVE [None]
  - PAROSMIA [None]
  - PRODUCT QUALITY ISSUE [None]
